FAERS Safety Report 15897490 (Version 3)
Quarter: 2019Q1

REPORT INFORMATION
  Report Type: Spontaneous
  Country: KR (occurrence: KR)
  Receive Date: 20190131
  Receipt Date: 20190131
  Transmission Date: 20190417
  Serious: Yes (Death, Hospitalization, Other)
  Sender: FDA-Public Use
  Company Number: PHHY2019KR019327

PATIENT
  Age: 10 Year
  Sex: Male

DRUGS (6)
  1. TACROLIMUS. [Suspect]
     Active Substance: TACROLIMUS
     Indication: RENAL TRANSPLANT
     Route: 065
  2. MYCOPHENOLATE MOFETIL. [Concomitant]
     Active Substance: MYCOPHENOLATE MOFETIL
     Indication: IMMUNOSUPPRESSANT DRUG THERAPY
  3. TACROLIMUS. [Suspect]
     Active Substance: TACROLIMUS
     Indication: IMMUNOSUPPRESSANT DRUG THERAPY
  4. PREDNISOLONE. [Suspect]
     Active Substance: PREDNISOLONE
     Indication: IMMUNOSUPPRESSANT DRUG THERAPY
     Dosage: 20 MG, UNK
     Route: 065
  5. MYCOPHENOLATE MOFETIL. [Concomitant]
     Active Substance: MYCOPHENOLATE MOFETIL
     Indication: RENAL TRANSPLANT
     Route: 065
  6. PREDNISOLONE. [Suspect]
     Active Substance: PREDNISOLONE
     Indication: RENAL TRANSPLANT
     Dosage: 2.5 MG, UNK
     Route: 065

REACTIONS (16)
  - Adenovirus infection [Fatal]
  - Cytomegalovirus infection [Fatal]
  - Cystitis haemorrhagic [Unknown]
  - Haematuria [Unknown]
  - Meningitis [Unknown]
  - Pyrexia [Fatal]
  - Chest discomfort [Fatal]
  - Thrombocytopenia [Unknown]
  - Generalised tonic-clonic seizure [Unknown]
  - Asthenia [Fatal]
  - Cough [Fatal]
  - Anaemia [Unknown]
  - Pneumocystis jirovecii pneumonia [Unknown]
  - Tubulointerstitial nephritis [Unknown]
  - Leukopenia [Unknown]
  - Dysuria [Unknown]
